FAERS Safety Report 12387023 (Version 3)
Quarter: 2018Q1

REPORT INFORMATION
  Report Type: Spontaneous
  Country: US (occurrence: US)
  Receive Date: 20160519
  Receipt Date: 20180330
  Transmission Date: 20180508
  Serious: Yes (Other)
  Sender: FDA-Public Use
  Company Number: US-TEVA-658928USA

PATIENT
  Sex: Female

DRUGS (4)
  1. PHENTERMINE. [Concomitant]
     Active Substance: PHENTERMINE
  2. COPAXONE [Suspect]
     Active Substance: GLATIRAMER ACETATE
     Indication: MULTIPLE SCLEROSIS
     Dates: start: 201503
  3. AMITRIPTYLIN [Concomitant]
     Active Substance: AMITRIPTYLINE
  4. COPAXONE [Suspect]
     Active Substance: GLATIRAMER ACETATE
     Dates: start: 20150317

REACTIONS (3)
  - Back pain [Not Recovered/Not Resolved]
  - Injection site erythema [Not Recovered/Not Resolved]
  - Multiple sclerosis [Unknown]
